FAERS Safety Report 4453681-0 (Version None)
Quarter: 2004Q3

REPORT INFORMATION
  Report Type: 
  Country: None (occurrence: None)
  Receive Date: 20040902
  Receipt Date: 20040602
  Transmission Date: 20050211
  Serious: No
  Sender: FDA-Public Use
  Company Number: 200418186BWH

PATIENT
  Age: 73 Year
  Sex: Male
  Weight: 86.1834 kg

DRUGS (8)
  1. LEVITRA [Suspect]
     Indication: ERECTILE DYSFUNCTION
     Dosage: 10 MG, ONCE ; 10 MG, TOTAL DAILY  : ORAL
     Route: 048
     Dates: start: 20040401
  2. LEVITRA [Suspect]
     Indication: ERECTILE DYSFUNCTION
     Dosage: 10 MG, ONCE ; 10 MG, TOTAL DAILY  : ORAL
     Route: 048
     Dates: start: 20040530
  3. VIAGRA [Concomitant]
  4. SAW PALMETTO [Concomitant]
  5. VITAMIN C [Concomitant]
  6. VITAMIN B-12 [Concomitant]
  7. MULTI-VITAMIN [Concomitant]
  8. GLUCOSAMINE [Concomitant]

REACTIONS (2)
  - OEDEMA PERIPHERAL [None]
  - RASH [None]
